FAERS Safety Report 21206356 (Version 1)
Quarter: 2022Q3

REPORT INFORMATION
  Report Type: Spontaneous
  Country: US (occurrence: None)
  Receive Date: 20220811
  Receipt Date: 20220811
  Transmission Date: 20221027
  Serious: Yes (Disabling)
  Sender: FDA-Public Use
  Company Number: None

PATIENT
  Age: 86 Year
  Sex: Female
  Weight: 81 kg

DRUGS (11)
  1. CIPRO [Suspect]
     Active Substance: CIPROFLOXACIN HYDROCHLORIDE
     Indication: Urinary tract infection
     Dates: start: 20220208, end: 20220218
  2. LEVOFLOXACIN [Concomitant]
     Active Substance: LEVOFLOXACIN
  3. PANTOPRAZOLE [Concomitant]
  4. duloxetine 30mg 1QD [Concomitant]
  5. Hydroxyzine HCL 25mg 1QIDPRN [Concomitant]
  6. PREGABALIN [Concomitant]
  7. ALPRAZOLAM [Concomitant]
  8. ESCITALOPRAM [Concomitant]
  9. zofran 1TIDPRN [Concomitant]
  10. Acyclovir Ambien [Concomitant]
  11. Preservision 2QD B Complex [Concomitant]

REACTIONS (6)
  - Fluid retention [None]
  - Rash erythematous [None]
  - Pruritus [None]
  - Scab [None]
  - Arthralgia [None]
  - Swelling [None]

NARRATIVE: CASE EVENT DATE: 20220213
